FAERS Safety Report 12931756 (Version 3)
Quarter: 2016Q4

REPORT INFORMATION
  Report Type: Spontaneous
  Country: JP (occurrence: JP)
  Receive Date: 20161110
  Receipt Date: 20161128
  Transmission Date: 20170207
  Serious: Yes (Hospitalization)
  Sender: FDA-Public Use
  Company Number: JP-BAXTER-2016BAX056644

PATIENT
  Age: 79 Year
  Sex: Male

DRUGS (8)
  1. UROMITEXAN 400 MG [Suspect]
     Active Substance: MESNA
     Indication: INTERSTITIAL LUNG DISEASE
     Route: 041
     Dates: start: 20160921, end: 20161018
  2. UROMITEXAN 400 MG [Suspect]
     Active Substance: MESNA
     Indication: OFF LABEL USE
  3. HUMULIN R [Concomitant]
     Active Substance: INSULIN HUMAN
     Indication: DIABETES MELLITUS
     Route: 058
  4. NASEA OD [Suspect]
     Active Substance: RAMOSETRON HYDROCHLORIDE
     Indication: INTERSTITIAL LUNG DISEASE
     Route: 048
     Dates: start: 20160921
  5. VOGLIBOSE OD [Concomitant]
     Active Substance: VOGLIBOSE
     Indication: DIABETES MELLITUS
     Route: 048
  6. ENDOXAN 1G [Suspect]
     Active Substance: CYCLOPHOSPHAMIDE
     Indication: OFF LABEL USE
     Dosage: PULSE THERAPY, ONCE DAILY
     Route: 041
     Dates: start: 20161018, end: 20161018
  7. ENDOXAN 1G [Suspect]
     Active Substance: CYCLOPHOSPHAMIDE
     Indication: INTERSTITIAL LUNG DISEASE
     Route: 041
     Dates: start: 20160921, end: 20160921
  8. PREDONINE [Suspect]
     Active Substance: PREDNISOLONE\PREDNISOLONE ACETATE\PREDNISOLONE SODIUM SUCCINATE
     Indication: INTERSTITIAL LUNG DISEASE
     Route: 041
     Dates: start: 20160918

REACTIONS (1)
  - Ileus paralytic [Recovered/Resolved]

NARRATIVE: CASE EVENT DATE: 20161022
